FAERS Safety Report 25922950 (Version 1)
Quarter: 2025Q4

REPORT INFORMATION
  Report Type: Report from Study
  Country: CA (occurrence: CA)
  Receive Date: 20251015
  Receipt Date: 20251015
  Transmission Date: 20260117
  Serious: Yes (Hospitalization)
  Sender: CSL BEHRING
  Company Number: CA-Vifor (International) Inc.-VIT-2024-04279

PATIENT
  Sex: Male

DRUGS (2)
  1. VELTASSA [Suspect]
     Active Substance: PATIROMER
     Indication: Blood potassium increased
     Dosage: 8.4 G, QD,1 SACHET PER DAY
     Route: 048
     Dates: start: 20240122
  2. VELTASSA [Suspect]
     Active Substance: PATIROMER
     Dosage: 16.8 G, QD, 2 SACHET PER DAY
     Route: 048

REACTIONS (2)
  - Hospitalisation [Unknown]
  - Product use issue [Unknown]

NARRATIVE: CASE EVENT DATE: 20240101
